FAERS Safety Report 8152880-4 (Version None)
Quarter: 2012Q1

REPORT INFORMATION
  Report Type: 
  Country: None (occurrence: None)
  Receive Date: 20120215
  Receipt Date: 20120206
  Transmission Date: 20120608
  Serious: Yes (Other)
  Sender: FDA-Public Use
  Company Number: 1201-012

PATIENT
  Age: 85 Year
  Sex: Female

DRUGS (3)
  1. PRESERVISION (PRESERVISION LUTEIN EYE VITA.+MIN.SUP.SOFTG.) [Concomitant]
  2. EYLEA [Suspect]
     Indication: AGE-RELATED MACULAR DEGENERATION
     Dosage: INTRAVITREAL
     Dates: start: 20120103
  3. ARTIFICIAL TEARS (ARTIFICIAL TEARS /90046201/) [Concomitant]

REACTIONS (11)
  - VISION BLURRED [None]
  - ENDOPHTHALMITIS [None]
  - VITRITIS [None]
  - HYPOPYON [None]
  - EYE INFLAMMATION [None]
  - LACRIMATION INCREASED [None]
  - CORNEAL OEDEMA [None]
  - HYPERSENSITIVITY [None]
  - VITREOUS DISORDER [None]
  - VITREOUS DETACHMENT [None]
  - EYE PRURITUS [None]
